FAERS Safety Report 8488002-X (Version None)
Quarter: 2012Q3

REPORT INFORMATION
  Report Type: 
  Country: None (occurrence: None)
  Receive Date: 20120705
  Receipt Date: 20120701
  Transmission Date: 20120928
  Serious: Yes (Death, Other)
  Sender: FDA-Public Use
  Company Number: PHHY2011JP103837

PATIENT
  Sex: Female
  Weight: 76 kg

DRUGS (7)
  1. MEDROXYPROGESTERONE ACETATE [Concomitant]
  2. TS-1 [Concomitant]
  3. AREDIA [Suspect]
     Indication: METASTASES TO BONE
     Route: 041
     Dates: start: 20060201, end: 20060501
  4. PACLITAXEL [Concomitant]
  5. ZOMETA [Suspect]
     Indication: METASTASES TO BONE
     Dosage: 4 MG, UNK
     Route: 041
     Dates: start: 20060501, end: 20090501
  6. TOR [Concomitant]
  7. CAPECITABINE [Concomitant]

REACTIONS (11)
  - PNEUMONIA STAPHYLOCOCCAL [None]
  - NEOPLASM MALIGNANT [None]
  - NEOPLASM PROGRESSION [None]
  - OSTEONECROSIS OF JAW [None]
  - MEDIASTINAL SHIFT [None]
  - METASTASES TO BONE [None]
  - RESPIRATORY DISORDER [None]
  - GENERAL PHYSICAL HEALTH DETERIORATION [None]
  - METASTASES TO CHEST WALL [None]
  - BONE NEOPLASM [None]
  - PLEURAL EFFUSION [None]
